FAERS Safety Report 19587479 (Version 1)
Quarter: 2021Q3

REPORT INFORMATION
  Report Type: Spontaneous
  Country: US (occurrence: US)
  Receive Date: 20210720
  Receipt Date: 20210720
  Transmission Date: 20211014
  Serious: Yes (Hospitalization)
  Sender: FDA-Public Use
  Company Number: None

PATIENT
  Age: 10 Year
  Sex: Male

DRUGS (1)
  1. NEUTROGENA SUNSCREEN NOS [Suspect]
     Active Substance: AVOBENZONE\HOMOSALATE\OCTISALATE\OCTOCRYLENE OR AVOBENZONE\HOMOSALATE\OCTISALATE\OCTOCRYLENE\OXYBENZONE
     Indication: PROPHYLAXIS AGAINST SOLAR RADIATION
     Dosage: ?          QUANTITY:1 SPRAY(S);?
     Dates: start: 20210611, end: 20210714

REACTIONS (6)
  - Vomiting [None]
  - Syncope [None]
  - Recalled product administered [None]
  - Dizziness [None]
  - Incorrect route of product administration [None]
  - Nausea [None]

NARRATIVE: CASE EVENT DATE: 20210613
